FAERS Safety Report 25476946 (Version 1)
Quarter: 2025Q2

REPORT INFORMATION
  Report Type: Spontaneous
  Country: ES (occurrence: ES)
  Receive Date: 20250625
  Receipt Date: 20250625
  Transmission Date: 20250717
  Serious: Yes (Life-Threatening, Hospitalization, Other)
  Sender: BRISTOL-MYERS SQUIBB COMPANY
  Company Number: None

PATIENT
  Age: 75 Year
  Sex: Male
  Weight: 100 kg

DRUGS (3)
  1. LENALIDOMIDE [Suspect]
     Active Substance: LENALIDOMIDE
     Indication: Plasma cell myeloma in remission
     Dosage: 10MG EVERY 24H ON DAYS 1-21 IN 28-DAY CYCLES
     Route: 048
     Dates: start: 20220515, end: 20250312
  2. DEXAMETHASONE [Suspect]
     Active Substance: DEXAMETHASONE
     Indication: Plasma cell myeloma in remission
     Dosage: 8MG EVERY 7 DAYS? 30 TABLETS
     Route: 048
     Dates: start: 20220302, end: 20250312
  3. LEVOFLOXACIN [Concomitant]
     Active Substance: LEVOFLOXACIN
     Indication: Post procedural infection
     Dosage: 500MG EVERY 24H FOR 7 DAYS
     Route: 048
     Dates: start: 20250513, end: 20250515

REACTIONS (3)
  - Visceral leishmaniasis [Recovering/Resolving]
  - Pancytopenia [Recovering/Resolving]
  - Agranulocytosis [Recovered/Resolved]

NARRATIVE: CASE EVENT DATE: 20250515
